FAERS Safety Report 8798248 (Version 1)
Quarter: 2012Q4

REPORT INFORMATION
  Report Type: Spontaneous
  Country: US (occurrence: None)
  Receive Date: 20120913
  Receipt Date: 20120913
  Transmission Date: 20130627
  Serious: Yes (Hospitalization)
  Sender: FDA-Public Use
  Company Number: JPI-P-024934

PATIENT
  Age: 44 Year
  Sex: Female
  Weight: 122.47 kg

DRUGS (5)
  1. XYREM (500 MILLIGRAM/MILLILITERS, SOLUTION)(SODIUM OXYBATE) [Suspect]
     Route: 048
     Dates: start: 201010
  2. XYREM (500 MILLIGRAM/MILLILITERS, SOLUTION)(SODIUM OXYBATE) [Suspect]
     Dosage: (4.2 gm, 2 in 1 D)
     Route: 048
  3. METRONIDAZOLE (UNKNOWN) [Suspect]
     Route: 048
     Dates: start: 20120714, end: 20120716
  4. VANCOMYCIN [Suspect]
     Dates: start: 201207, end: 20120720
  5. MULTIPLE UNSPECIFIED MEDICATIONS [Concomitant]

REACTIONS (9)
  - Clostridium difficile colitis [None]
  - Blood potassium decreased [None]
  - Rash [None]
  - Abdominal pain [None]
  - Nausea [None]
  - Asthenia [None]
  - Fatigue [None]
  - Palpitations [None]
  - Decreased appetite [None]
